FAERS Safety Report 6936456-X (Version None)
Quarter: 2010Q3

REPORT INFORMATION
  Report Type: 
  Country: None (occurrence: None)
  Receive Date: 20100818
  Receipt Date: 20100806
  Transmission Date: 20110219
  Serious: Yes (Hospitalization)
  Sender: FDA-Public Use
  Company Number: 7013565

PATIENT
  Age: 65 Year
  Sex: Female
  Weight: 97 kg

DRUGS (2)
  1. REBIF [Suspect]
     Indication: MULTIPLE SCLEROSIS
     Dosage: 8.8 MCG, 3 IN 1 WK, SUBCUTANEOUS
     Route: 058
     Dates: start: 20100727, end: 20100802
  2. ATENOLOL [Concomitant]

REACTIONS (8)
  - BLOOD POTASSIUM DECREASED [None]
  - COUGH [None]
  - DYSPNOEA [None]
  - HEART RATE DECREASED [None]
  - INJECTION SITE ERYTHEMA [None]
  - MULTIPLE SCLEROSIS RELAPSE [None]
  - THROAT TIGHTNESS [None]
  - TREMOR [None]
